FAERS Safety Report 8086190-0 (Version None)
Quarter: 2012Q1

REPORT INFORMATION
  Report Type: 
  Country: None (occurrence: None)
  Receive Date: 20120128
  Receipt Date: 20110426
  Transmission Date: 20120608
  Serious: No
  Sender: FDA-Public Use
  Company Number: US-ABBOTT-11P-163-0721801-00

PATIENT
  Sex: Female
  Weight: 77.18 kg

DRUGS (2)
  1. MULTI-VITAMINS [Concomitant]
     Indication: PRODUCT USED FOR UNKNOWN INDICATION
  2. HUMIRA [Suspect]
     Indication: ANKYLOSING SPONDYLITIS
     Dates: start: 20100901

REACTIONS (6)
  - PARAESTHESIA [None]
  - DRY SKIN [None]
  - PSORIASIS [None]
  - RASH [None]
  - RASH PRURITIC [None]
  - RASH ERYTHEMATOUS [None]
